FAERS Safety Report 11365918 (Version 3)
Quarter: 2016Q3

REPORT INFORMATION
  Report Type: Spontaneous
  Country: US (occurrence: US)
  Receive Date: 20150811
  Receipt Date: 20160816
  Transmission Date: 20161109
  Serious: Yes (Hospitalization, Disabling)
  Sender: FDA-Public Use
  Company Number: US-BAYER-2015-390071

PATIENT
  Age: 66 Year
  Sex: Male
  Weight: 91.61 kg

DRUGS (22)
  1. ASPIRIN. [Concomitant]
     Active Substance: ASPIRIN
     Indication: INFLAMMATORY PAIN
     Dosage: 325 MG, QD
     Dates: start: 2010
  2. CARVEDILOL. [Concomitant]
     Active Substance: CARVEDILOL
     Indication: HYPERTENSION
     Dosage: 3.125 MG, BID
     Dates: start: 2006
  3. POLYETHYL. GLYC. W/POTAS. CHLOR./SOD. BICARB. [Concomitant]
     Indication: ENDOSCOPY
     Dosage: UNK UNK, PRN
  4. PREDNISONE. [Concomitant]
     Active Substance: PREDNISONE
     Indication: NEURALGIA
     Dosage: UNK
     Dates: start: 2010
  5. LEVAQUIN [Suspect]
     Active Substance: LEVOFLOXACIN
     Indication: BENIGN PROSTATIC HYPERPLASIA
  6. METFORMIN [Concomitant]
     Active Substance: METFORMIN HYDROCHLORIDE
     Indication: TYPE 2 DIABETES MELLITUS
     Dosage: 1000 MG, BID
     Dates: start: 2010, end: 2015
  7. MULTIVITAMINS W/MINERALS [Concomitant]
     Active Substance: MINERALS\VITAMINS
     Indication: GENERAL PHYSICAL HEALTH DETERIORATION
     Dosage: UNK
     Route: 048
  8. VITAMIN D [COLECALCIFEROL] [Concomitant]
     Indication: HYPOVITAMINOSIS
     Dosage: 4000 IU, QD
  9. AVELOX [Suspect]
     Active Substance: MOXIFLOXACIN HYDROCHLORIDE
     Indication: SINUSITIS
     Dosage: 400 MG, UNK
     Dates: start: 20091010, end: 20091017
  10. SILDENAFIL. [Concomitant]
     Active Substance: SILDENAFIL
     Indication: ERECTILE DYSFUNCTION
     Dosage: 100 MG, QD
  11. ARMODAFINIL. [Concomitant]
     Active Substance: ARMODAFINIL
     Dosage: 50 MG, QD
  12. CIPROFLOXACIN. [Suspect]
     Active Substance: CIPROFLOXACIN
     Indication: SINUSITIS
     Dosage: 500 MG, UNK
     Dates: start: 20110518, end: 20110528
  13. ALLOPURINOL. [Concomitant]
     Active Substance: ALLOPURINOL
     Indication: BLOOD URIC ACID INCREASED
     Dosage: 100 MG, BID
  14. VITAMIN C [Concomitant]
     Active Substance: ASCORBIC ACID
     Indication: GENERAL PHYSICAL HEALTH DETERIORATION
     Dosage: 1000 MG, QD
  15. FENTANYL. [Concomitant]
     Active Substance: FENTANYL
     Indication: DRUG HYPERSENSITIVITY
     Dosage: 100 MCG/24HR, QOD
     Dates: start: 2008
  16. OXYCODONE [Concomitant]
     Active Substance: OXYCODONE
     Indication: BACK PAIN
     Dosage: 10 MG, BID
  17. LEVAQUIN [Suspect]
     Active Substance: LEVOFLOXACIN
     Indication: PROSTATITIS
     Dosage: 500 MG, UNK
     Dates: start: 201010
  18. BENICAR [Concomitant]
     Active Substance: OLMESARTAN MEDOXOMIL
     Indication: HYPERTENSION
     Dosage: 40 MG, QD
     Dates: start: 2006
  19. OMEGA-6 FATTY ACIDS [Concomitant]
     Active Substance: OMEGA-6 FATTY ACIDS
     Dosage: 1000 MG, BID
  20. AMOXICILLIN. [Concomitant]
     Active Substance: AMOXICILLIN
     Indication: SINUS DISORDER
     Dosage: UNK
     Dates: start: 2010
  21. CETIRIZIN [Concomitant]
     Active Substance: CETIRIZINE HYDROCHLORIDE
     Indication: MULTIPLE ALLERGIES
     Dosage: 10 MG, QD
  22. POTASSIUM CITRATE. [Concomitant]
     Active Substance: POTASSIUM CITRATE
     Indication: NEPHROLITHIASIS
     Dosage: 180 MG, QD

REACTIONS (14)
  - Emotional distress [None]
  - Gait disturbance [Not Recovered/Not Resolved]
  - Depression [None]
  - Balance disorder [Not Recovered/Not Resolved]
  - Fall [None]
  - Facial bones fracture [None]
  - Neuropathy peripheral [Not Recovered/Not Resolved]
  - Fall [None]
  - Economic problem [None]
  - Hypoaesthesia [Not Recovered/Not Resolved]
  - Injury [None]
  - Back pain [None]
  - Pain [Not Recovered/Not Resolved]
  - Neuropathy peripheral [None]

NARRATIVE: CASE EVENT DATE: 20160717
